FAERS Safety Report 25572344 (Version 1)
Quarter: 2025Q3

REPORT INFORMATION
  Report Type: Spontaneous
  Country: US (occurrence: US)
  Receive Date: 20250717
  Receipt Date: 20250717
  Transmission Date: 20251021
  Serious: Yes (Hospitalization)
  Sender: ELI LILLY AND COMPANY
  Company Number: US-ELI_LILLY_AND_COMPANY-US202507010593

PATIENT
  Age: 63 Year
  Sex: Male

DRUGS (5)
  1. HUMALOG [Suspect]
     Active Substance: INSULIN LISPRO
     Indication: Blood glucose increased
     Route: 058
     Dates: start: 2022
  2. HUMALOG [Suspect]
     Active Substance: INSULIN LISPRO
     Indication: Blood glucose increased
     Route: 058
     Dates: start: 2022
  3. HUMALOG [Suspect]
     Active Substance: INSULIN LISPRO
     Route: 058
  4. HUMALOG [Suspect]
     Active Substance: INSULIN LISPRO
     Route: 058
  5. DOXYCYCLINE [Concomitant]
     Active Substance: DOXYCYCLINE
     Indication: Product used for unknown indication

REACTIONS (4)
  - Fall [Unknown]
  - Cataract [Unknown]
  - Rocky mountain spotted fever [Unknown]
  - Blood glucose increased [Unknown]

NARRATIVE: CASE EVENT DATE: 20250101
